FAERS Safety Report 6699996-7 (Version None)
Quarter: 2010Q2

REPORT INFORMATION
  Report Type: 
  Country: None (occurrence: None)
  Receive Date: 20100428
  Receipt Date: 20100426
  Transmission Date: 20101027
  Serious: Yes (Death, Other)
  Sender: FDA-Public Use
  Company Number: PHHY2009GB59409

PATIENT
  Sex: Male

DRUGS (2)
  1. CLOZARIL [Suspect]
     Indication: SCHIZOPHRENIA, PARANOID TYPE
     Dosage: 300 MG, QD
     Route: 048
     Dates: start: 19950504
  2. RANITIDINE [Concomitant]
     Dosage: 150 MG, BID
     Route: 048

REACTIONS (3)
  - CORONARY ARTERY THROMBOSIS [None]
  - MYOCARDIAL ISCHAEMIA [None]
  - SYNCOPE [None]
